FAERS Safety Report 10756658 (Version 4)
Quarter: 2016Q2

REPORT INFORMATION
  Report Type: Report from Study
  Country: DE (occurrence: DE)
  Receive Date: 20150202
  Receipt Date: 20160504
  Transmission Date: 20160815
  Serious: Yes (Hospitalization)
  Sender: FDA-Public Use
  Company Number: PHHO2015DE000503

PATIENT
  Age: 59 Year
  Sex: Male
  Weight: 70 kg

DRUGS (4)
  1. AIN457 [Suspect]
     Active Substance: SECUKINUMAB
     Indication: PSORIASIS
     Route: 058
     Dates: start: 20130222
  2. TANTUM VERDE [Concomitant]
     Active Substance: BENZYDAMINE HYDROCHLORIDE
     Indication: NASOPHARYNGITIS
     Dosage: .45 MG, BID
     Route: 055
     Dates: start: 20141127, end: 20141130
  3. GELOMYRTOL [Concomitant]
     Indication: NASOPHARYNGITIS
     Dosage: 300 MG, BID
     Route: 048
     Dates: start: 20131201, end: 20141203
  4. ASPIRIN COMPLEX [Concomitant]
     Active Substance: ASPIRIN\PSEUDOEPHEDRINE HYDROCHLORIDE
     Indication: NASOPHARYNGITIS
     Dosage: 500 MG, PRN
     Route: 048
     Dates: start: 20141201, end: 20141203

REACTIONS (7)
  - Cranial nerve paralysis [Recovered/Resolved with Sequelae]
  - Otitis media [Recovering/Resolving]
  - Pharyngeal abscess [Recovered/Resolved with Sequelae]
  - Tonsillitis [Recovering/Resolving]
  - Pharyngitis [Recovering/Resolving]
  - Osteomyelitis [Recovered/Resolved with Sequelae]
  - Sinusitis [Recovering/Resolving]

NARRATIVE: CASE EVENT DATE: 20141203
